FAERS Safety Report 4373487-0 (Version None)
Quarter: 2004Q1

REPORT INFORMATION
  Report Type: 
  Country: None (occurrence: None)
  Receive Date: 20040305
  Receipt Date: 20031217
  Transmission Date: 20041129
  Serious: Yes (Other)
  Sender: FDA-Public Use
  Company Number: 2003UW16817

PATIENT
  Age: 65 Year
  Sex: Female
  Weight: 88.905 kg

DRUGS (1)
  1. CRESTOR [Suspect]
     Indication: HYPERCHOLESTEROLAEMIA
     Dosage: 10 MG DAILY PO
     Route: 048

REACTIONS (2)
  - HOT FLUSH [None]
  - HYPOAESTHESIA [None]
